FAERS Safety Report 17060352 (Version 1)
Quarter: 2019Q4

REPORT INFORMATION
  Report Type: Spontaneous
  Country: CN (occurrence: CN)
  Receive Date: 20191121
  Receipt Date: 20191121
  Transmission Date: 20200122
  Serious: Yes (Death)
  Sender: FDA-Public Use
  Company Number: CN-BAYER-2019-209979

PATIENT
  Age: 70 Year
  Sex: Female

DRUGS (1)
  1. REGORAFENIB. [Suspect]
     Active Substance: REGORAFENIB
     Indication: SMALL INTESTINE ADENOCARCINOMA
     Dosage: UNK
     Dates: start: 2018, end: 2018

REACTIONS (3)
  - Product use in unapproved indication [None]
  - Myocardial infarction [Fatal]
  - Off label use [None]

NARRATIVE: CASE EVENT DATE: 2018
